FAERS Safety Report 26065129 (Version 1)
Quarter: 2025Q4

REPORT INFORMATION
  Report Type: Spontaneous
  Country: US (occurrence: US)
  Receive Date: 20251119
  Receipt Date: 20251119
  Transmission Date: 20260118
  Serious: No
  Sender: UPSHER SMITH LABORATORIES
  Company Number: US-UPSHER-SMITH LABORATORIES, LLC-20250400795

PATIENT
  Sex: Female
  Weight: 58.05 kg

DRUGS (3)
  1. RAMELTEON [Suspect]
     Active Substance: RAMELTEON
     Indication: Insomnia
     Dosage: 1 DOSAGE FORM, QD (1 TABLET EVERY EVENING AT BEDTIME)
     Route: 065
     Dates: start: 202502
  2. RAMELTEON [Suspect]
     Active Substance: RAMELTEON
     Dosage: 15 DOSAGE FORM
     Route: 065
  3. RAMELTEON [Suspect]
     Active Substance: RAMELTEON
     Indication: Insomnia
     Dosage: 15 DOSAGE FORM
     Route: 065

REACTIONS (1)
  - Drug ineffective [Unknown]

NARRATIVE: CASE EVENT DATE: 20250101
